FAERS Safety Report 9828143 (Version 4)
Quarter: 2014Q1

REPORT INFORMATION
  Report Type: Spontaneous
  Country: CA (occurrence: CA)
  Receive Date: 20140117
  Receipt Date: 20140331
  Transmission Date: 20141002
  Serious: Yes (Hospitalization)
  Sender: FDA-Public Use
  Company Number: CA-GLAXOSMITHKLINE-A1055640A

PATIENT
  Sex: Female
  Weight: 73.5 kg

DRUGS (1)
  1. BENLYSTA [Suspect]
     Indication: SYSTEMIC LUPUS ERYTHEMATOSUS
     Dosage: 690MG SEE DOSAGE TEXT
     Route: 042
     Dates: start: 20130614

REACTIONS (6)
  - Gastrointestinal disorder [Not Recovered/Not Resolved]
  - Dehydration [Unknown]
  - Transient ischaemic attack [Unknown]
  - Malaise [Unknown]
  - Fatigue [Unknown]
  - Pneumonia [Recovered/Resolved]
